FAERS Safety Report 12104837 (Version 2)
Quarter: 2016Q2

REPORT INFORMATION
  Report Type: Spontaneous
  Country: US (occurrence: US)
  Receive Date: 20160223
  Receipt Date: 20160413
  Transmission Date: 20160815
  Serious: Yes (Death)
  Sender: FDA-Public Use
  Company Number: US-PFIZER INC-2015476418

PATIENT
  Age: 53 Year
  Sex: Female
  Weight: 88.6 kg

DRUGS (2)
  1. AUGMENTIN [Concomitant]
     Active Substance: AMOXICILLIN\CLAVULANATE POTASSIUM
  2. IBRANCE [Suspect]
     Active Substance: PALBOCICLIB
     Indication: BREAST CANCER FEMALE
     Dosage: 125 MG, CYCLIC (28 DAYS, 1-21, QD) (21 DAYS THEN OFF FOR 7, ONCE A DAY)
     Route: 048

REACTIONS (3)
  - Breast cancer female [Fatal]
  - Disease progression [Fatal]
  - Full blood count abnormal [Unknown]

NARRATIVE: CASE EVENT DATE: 20160111
